FAERS Safety Report 9999098 (Version 3)
Quarter: 2014Q1

REPORT INFORMATION
  Report Type: Spontaneous
  Country: JP (occurrence: None)
  Receive Date: 20140310
  Receipt Date: 20140313
  Transmission Date: 20141002
  Serious: Yes (Hospitalization)
  Sender: FDA-Public Use
  Company Number: AE-SPE-2013-032

PATIENT
  Age: 35 Month
  Sex: Male

DRUGS (8)
  1. MEIACT MS [Suspect]
     Indication: UPPER RESPIRATORY TRACT INFLAMMATION
     Route: 048
     Dates: start: 20131005, end: 20131008
  2. FLOMAX [Suspect]
     Indication: UPPER RESPIRATORY TRACT INFLAMMATION
     Route: 048
     Dates: start: 20131024, end: 20131027
  3. TIPEPIDINE HIBENZATE [Concomitant]
  4. I-CARBOCISTEINE [Concomitant]
  5. BIFIDOBACGERIUM [Concomitant]
  6. TRANEXAMIC ACID [Concomitant]
  7. MONTELUKAST SODIUM [Concomitant]
  8. TUBOBUTEROL [Concomitant]

REACTIONS (2)
  - Pseudomembranous colitis [None]
  - Clostridium difficile colitis [None]
